FAERS Safety Report 13930388 (Version 1)
Quarter: 2017Q3

REPORT INFORMATION
  Report Type: Spontaneous
  Country: ZA (occurrence: ZA)
  Receive Date: 20170901
  Receipt Date: 20170901
  Transmission Date: 20171127
  Serious: Yes (Other)
  Sender: FDA-Public Use
  Company Number: ZA-NOVOPROD-560851

PATIENT
  Age: 59 Year
  Sex: Female

DRUGS (1)
  1. KLIOGEST [Suspect]
     Active Substance: ESTROGENS
     Indication: HORMONE REPLACEMENT THERAPY
     Dosage: UNK
     Route: 065
     Dates: end: 201706

REACTIONS (1)
  - Neoplasm malignant [Unknown]
